FAERS Safety Report 23064457 (Version 1)
Quarter: 2023Q4

REPORT INFORMATION
  Report Type: Spontaneous
  Country: US (occurrence: None)
  Receive Date: 20231013
  Receipt Date: 20231013
  Transmission Date: 20240110
  Serious: Yes (Life-Threatening, Hospitalization)
  Sender: FDA-Public Use
  Company Number: None

PATIENT
  Age: 80 Year
  Sex: Male

DRUGS (2)
  1. HYDROCHLOROTHIAZIDE [Suspect]
     Active Substance: HYDROCHLOROTHIAZIDE
     Dosage: OTHER FREQUENCY : AM;?
     Route: 048
     Dates: start: 20221031, end: 20221117
  2. LISINOPRIL [Suspect]
     Active Substance: LISINOPRIL
     Dosage: OTHER QUANTITY : 1/2 TAB;?OTHER FREQUENCY : AM;?
     Route: 048
     Dates: start: 20221031, end: 20221117

REACTIONS (5)
  - Acute kidney injury [None]
  - Dyspnoea [None]
  - Mitral valve incompetence [None]
  - Acute kidney injury [None]
  - Therapy interrupted [None]
